FAERS Safety Report 25905555 (Version 1)
Quarter: 2025Q4

REPORT INFORMATION
  Report Type: Spontaneous
  Country: US (occurrence: US)
  Receive Date: 20251010
  Receipt Date: 20251010
  Transmission Date: 20260118
  Serious: No
  Sender: MERCK SHARP & DOHME LLC
  Company Number: US-009507513-2331338

PATIENT
  Age: 7 Year
  Sex: Female

DRUGS (2)
  1. VARIVAX [Suspect]
     Active Substance: VARICELLA-ZOSTER VIRUS STRAIN OKA/MERCK LIVE ANTIGEN
     Route: 058
     Dates: start: 20250605, end: 20250605
  2. STERILE DILUENT (WATER) [Suspect]
     Active Substance: WATER
     Route: 058
     Dates: start: 20250605, end: 20250605

REACTIONS (2)
  - Product storage error [Unknown]
  - No adverse event [Unknown]

NARRATIVE: CASE EVENT DATE: 20250605
